FAERS Safety Report 23532245 (Version 1)
Quarter: 2024Q1

REPORT INFORMATION
  Report Type: Spontaneous
  Country: US (occurrence: None)
  Receive Date: 20240215
  Receipt Date: 20240215
  Transmission Date: 20240410
  Serious: No
  Sender: FDA-Public Use
  Company Number: None

PATIENT
  Sex: Female

DRUGS (3)
  1. VERZENIO [Suspect]
     Active Substance: ABEMACICLIB
     Indication: Breast cancer female
     Dosage: FREQUENCY : TWICE A DAY;?
     Route: 048
     Dates: start: 202301
  2. ANASTROZOLE [Suspect]
     Active Substance: ANASTROZOLE
  3. ELIQUIS [Suspect]
     Active Substance: APIXABAN

REACTIONS (4)
  - Pneumonitis [None]
  - Deep vein thrombosis [None]
  - Pulmonary embolism [None]
  - Therapy interrupted [None]
